FAERS Safety Report 9527510 (Version 1)
Quarter: 2013Q2

REPORT INFORMATION
  Report Type: Spontaneous
  Country: US (occurrence: None)
  Receive Date: 20130511
  Receipt Date: 20130511
  Transmission Date: 20140414
  Serious: Yes (Other)
  Sender: FDA-Public Use
  Company Number: CIP-2013-00057

PATIENT
  Sex: Female

DRUGS (6)
  1. CARBOPLATIN INJECTION [Suspect]
     Indication: OVARIAN CANCER
     Dosage: AUC 6  (DAY 1; REPEATED 21 DAYS)
     Route: 033
  2. CARBOPLATIN INJECTION [Suspect]
     Indication: OVARIAN CANCER
     Dosage: AUC 6  (DAY 1; REPEATED 21 DAYS)
     Route: 033
  3. PACLITAXEL [Suspect]
     Indication: OVARIAN CANCER
     Dosage: DAY 8; REPEATED EVERY 21 DAYS
     Route: 033
  4. PACLITAXEL [Suspect]
     Indication: OVARIAN CANCER
     Dosage: DAY 8; REPEATED EVERY 21 DAYS
     Route: 033
  5. DOCETAXEL (DOCETAXEL) [Suspect]
     Indication: OVARIAN CANCER
     Dosage: DAY 1; EVERY 21 DAYS
     Route: 042
  6. DOCETAXEL (DOCETAXEL) [Suspect]
     Indication: OVARIAN CANCER
     Dosage: DAY 1; EVERY 21 DAYS
     Route: 042

REACTIONS (1)
  - Platelet disorder [None]
